FAERS Safety Report 5011099-6 (Version None)
Quarter: 2006Q2

REPORT INFORMATION
  Report Type: 
  Country: None (occurrence: None)
  Receive Date: 20060523
  Receipt Date: 20060509
  Transmission Date: 20061013
  Serious: Yes (Other)
  Sender: FDA-Public Use
  Company Number: BR-2006-011332

PATIENT
  Age: 50 Year
  Sex: Female

DRUGS (2)
  1. BETASERON [Suspect]
     Indication: MULTIPLE SCLEROSIS
     Dosage: 1 ML, EVERY 2D, SUBCUTANEOUS
     Route: 058
     Dates: start: 20040701
  2. CARBAMAZEPINE [Concomitant]

REACTIONS (11)
  - BURNING SENSATION [None]
  - CHILLS [None]
  - COLITIS [None]
  - CONSTIPATION [None]
  - DIFFICULTY IN WALKING [None]
  - GASTRITIS [None]
  - INJECTION SITE NODULE [None]
  - INJECTION SITE PAIN [None]
  - MULTIPLE SCLEROSIS RELAPSE [None]
  - PAIN [None]
  - PYREXIA [None]
